FAERS Safety Report 4604166-X (Version None)
Quarter: 2005Q1

REPORT INFORMATION
  Report Type: 
  Country: None (occurrence: None)
  Receive Date: 20050308
  Receipt Date: 20050308
  Transmission Date: 20050727
  Serious: Yes (Other)
  Sender: FDA-Public Use
  Company Number: None

PATIENT
  Age: 60 Year
  Sex: Female
  Weight: 70.7611 kg

DRUGS (2)
  1. ATENOLOL [Suspect]
     Indication: TACHYCARDIA
     Dosage: 100MG DAILY
     Dates: start: 20041214
  2. CLONAZEPAM [Suspect]
     Indication: ANXIETY DISORDER
     Dosage: 0.5 MG DAILY
     Dates: start: 20041214

REACTIONS (2)
  - DRUG INEFFECTIVE [None]
  - PALPITATIONS [None]
